FAERS Safety Report 24046306 (Version 1)
Quarter: 2024Q3

REPORT INFORMATION
  Report Type: Spontaneous
  Country: CA (occurrence: CA)
  Receive Date: 20240703
  Receipt Date: 20240703
  Transmission Date: 20241017
  Serious: Yes (Life-Threatening, Hospitalization, Other)
  Sender: PFIZER
  Company Number: CA-PFIZER INC-202400205087

PATIENT
  Age: 91 Year
  Sex: Male
  Weight: 83 kg

DRUGS (13)
  1. FRAGMIN [Suspect]
     Active Substance: DALTEPARIN SODIUM
     Indication: Deep vein thrombosis
     Dosage: 15000 IU, 1X/DAY
     Route: 058
  2. ATORVASTATIN CALCIUM [Concomitant]
     Active Substance: ATORVASTATIN CALCIUM
     Route: 065
  3. DOCUSATE SODIUM [Concomitant]
     Active Substance: DOCUSATE SODIUM
  4. FINASTERIDE [Concomitant]
     Active Substance: FINASTERIDE
  5. FOSINOPRIL [Concomitant]
     Active Substance: FOSINOPRIL
  6. FERROUS SULFATE ANHYDROUS [Concomitant]
     Active Substance: FERROUS SULFATE ANHYDROUS
  7. MIRTAZAPINE [Concomitant]
     Active Substance: MIRTAZAPINE
  8. PANTOPRAZOLE [Concomitant]
     Active Substance: PANTOPRAZOLE
  9. SENNOSIDES [Concomitant]
     Active Substance: SENNOSIDES
  10. TAMSULOSIN [Concomitant]
     Active Substance: TAMSULOSIN
  11. TOVIAZ [Concomitant]
     Active Substance: FESOTERODINE FUMARATE
  12. CALCIUM ASCORBATE [Concomitant]
     Active Substance: CALCIUM ASCORBATE
  13. VITAMIN D NOS [Concomitant]
     Active Substance: CHOLECALCIFEROL\ERGOCALCIFEROL

REACTIONS (2)
  - Acute kidney injury [Recovered/Resolved]
  - Renal haemorrhage [Recovered/Resolved]
